FAERS Safety Report 6748896-2 (Version None)
Quarter: 2010Q2

REPORT INFORMATION
  Report Type: 
  Country: None (occurrence: None)
  Receive Date: 20100526
  Receipt Date: 20081018
  Transmission Date: 20101027
  Serious: No
  Sender: FDA-Public Use
  Company Number: 2008-00115

PATIENT
  Sex: Female

DRUGS (3)
  1. ZICAM COLD REMEDY ORAL MIST [Suspect]
     Dosage: QID X 1 DAY
     Dates: start: 20081015, end: 20081016
  2. ESTROGEN PATCH [Concomitant]
  3. ASPIRIN [Concomitant]

REACTIONS (2)
  - AGEUSIA [None]
  - ANOSMIA [None]
